FAERS Safety Report 5120158-9 (Version None)
Quarter: 2006Q3

REPORT INFORMATION
  Report Type: 
  Country: None (occurrence: None)
  Receive Date: 20060928
  Receipt Date: 20060914
  Transmission Date: 20061208
  Serious: Yes (Hospitalization)
  Sender: FDA-Public Use
  Company Number: 230145

PATIENT
  Age: 52 Year
  Sex: Female
  Weight: 75 kg

DRUGS (1)
  1. HERCEPTIN [Suspect]
     Indication: BREAST CANCER
     Dosage: 6MG/KG, INTRAVENOUS
     Route: 042
     Dates: start: 20060507

REACTIONS (2)
  - CONDITION AGGRAVATED [None]
  - HYPERTENSION [None]
